FAERS Safety Report 12250580 (Version 2)
Quarter: 2016Q2

REPORT INFORMATION
  Report Type: Report from Study
  Country: RO (occurrence: RO)
  Receive Date: 20160408
  Receipt Date: 20160418
  Transmission Date: 20160815
  Serious: Yes (Other)
  Sender: FDA-Public Use
  Company Number: RO-ABBVIE-16P-135-1597133-00

PATIENT
  Sex: Male

DRUGS (2)
  1. DUODOPA [Suspect]
     Active Substance: CARBIDOPA\LEVODOPA
     Indication: PRODUCT USED FOR UNKNOWN INDICATION
     Dosage: 24/24 MD 7 ML, CR 5.8 ML, ED 3.3 ML
     Route: 050
     Dates: start: 20130115
  2. DUODOPA [Suspect]
     Active Substance: CARBIDOPA\LEVODOPA
     Route: 050
     Dates: start: 20160411

REACTIONS (5)
  - Mucosal necrosis [Unknown]
  - Abdominal hernia [Unknown]
  - Device dislocation [Recovering/Resolving]
  - Device dislocation [Unknown]
  - Upper respiratory tract infection [Unknown]

NARRATIVE: CASE EVENT DATE: 20160327
